FAERS Safety Report 23721888 (Version 2)
Quarter: 2024Q2

REPORT INFORMATION
  Report Type: Spontaneous
  Country: CN (occurrence: CN)
  Receive Date: 20240409
  Receipt Date: 20240412
  Transmission Date: 20240716
  Serious: Yes (Other)
  Sender: FDA-Public Use
  Company Number: CN-BAUSCH-BL-2024-005369

PATIENT
  Age: 70 Year
  Sex: Female

DRUGS (5)
  1. DEXAMETHASONE [Suspect]
     Active Substance: DEXAMETHASONE
     Indication: B precursor type acute leukaemia
     Dosage: INDUCTION CHEMOTHERAPY OF THE VDLD REGIMEN
     Route: 065
     Dates: start: 20210801, end: 202108
  2. DEXAMETHASONE [Suspect]
     Active Substance: DEXAMETHASONE
     Dosage: IV TWICE A DAY FOR 5 DAYS, GRADUALLY TAPERED OVER 14 DAYS
     Route: 042
  3. VINDESINE [Suspect]
     Active Substance: VINDESINE
     Indication: B precursor type acute leukaemia
     Dosage: INDUCTION CHEMOTHERAPY OF THE VDLD REGIMEN
     Route: 065
     Dates: start: 20210801, end: 202108
  4. IDARUBICIN [Suspect]
     Active Substance: IDARUBICIN
     Indication: B precursor type acute leukaemia
     Dosage: INDUCTION CHEMOTHERAPY OF THE VDLD REGIMEN
     Route: 065
     Dates: start: 20210801, end: 202108
  5. PEG/L-ASPARAGINASE [Suspect]
     Active Substance: PEGASPARGASE
     Indication: B precursor type acute leukaemia
     Dosage: INDUCTION CHEMOTHERAPY OF THE VDLD REGIMEN
     Route: 065
     Dates: start: 20210801, end: 202108

REACTIONS (4)
  - Myelosuppression [Recovered/Resolved]
  - Febrile neutropenia [Recovered/Resolved]
  - Pseudomonas infection [Recovered/Resolved]
  - Haematological infection [Recovered/Resolved]

NARRATIVE: CASE EVENT DATE: 20210801
